FAERS Safety Report 5475068-4 (Version None)
Quarter: 2007Q4

REPORT INFORMATION
  Report Type: 
  Country: None (occurrence: None)
  Receive Date: 20071002
  Receipt Date: 20070920
  Transmission Date: 20080405
  Serious: Yes (Other)
  Sender: FDA-Public Use
  Company Number: US-PFIZER INC-2007080314

PATIENT
  Age: 47 Year
  Sex: Female

DRUGS (4)
  1. CHANTIX [Suspect]
     Indication: SMOKING CESSATION THERAPY
  2. LISINOPRIL [Concomitant]
     Indication: HYPERTENSION
  3. CLONIDINE [Concomitant]
     Indication: HYPERTENSION
  4. ALBUTEROL [Concomitant]
     Indication: ASTHMA

REACTIONS (4)
  - ASTHENIA [None]
  - HYPOKINESIA [None]
  - PAIN [None]
  - WEIGHT FLUCTUATION [None]
